FAERS Safety Report 5628779-1 (Version None)
Quarter: 2008Q1

REPORT INFORMATION
  Report Type: 
  Country: None (occurrence: None)
  Receive Date: 20080214
  Receipt Date: 20080129
  Transmission Date: 20080703
  Serious: Yes (Death, Hospitalization)
  Sender: FDA-Public Use
  Company Number: 2007US000010

PATIENT
  Age: 73 Year
  Sex: Female
  Weight: 93 kg

DRUGS (1)
  1. AMEVIVE [Suspect]
     Indication: PSORIASIS
     Dosage: 15 MG, WEEKLY, INTRAMUSCULAR
     Route: 030
     Dates: start: 20030910

REACTIONS (23)
  - ABDOMINAL PAIN UPPER [None]
  - ACUTE RESPIRATORY FAILURE [None]
  - ANAEMIA [None]
  - BACK PAIN [None]
  - BLOOD GLUCOSE INCREASED [None]
  - CARDIO-RESPIRATORY ARREST [None]
  - CHRONIC OBSTRUCTIVE PULMONARY DISEASE [None]
  - CONDITION AGGRAVATED [None]
  - CONVULSION [None]
  - CULTURE URINE POSITIVE [None]
  - DYSPHAGIA [None]
  - ENTEROCOCCAL INFECTION [None]
  - FALL [None]
  - FUNGAL INFECTION [None]
  - HAEMATURIA [None]
  - HYPERTENSION [None]
  - KLEBSIELLA INFECTION [None]
  - LEFT VENTRICULAR HYPERTROPHY [None]
  - LEUKOCYTOSIS [None]
  - PNEUMONIA [None]
  - POLYURIA [None]
  - SKIN HAEMORRHAGE [None]
  - STAPHYLOCOCCAL SEPSIS [None]
